FAERS Safety Report 15913612 (Version 1)
Quarter: 2019Q1

REPORT INFORMATION
  Report Type: Spontaneous
  Country: US (occurrence: US)
  Receive Date: 20190204
  Receipt Date: 20190204
  Transmission Date: 20190417
  Serious: No
  Sender: FDA-Public Use
  Company Number: US-ABBVIE-18K-163-2534806-00

PATIENT

DRUGS (1)
  1. HUMIRA [Suspect]
     Active Substance: ADALIMUMAB
     Indication: PRODUCT USED FOR UNKNOWN INDICATION
     Route: 058

REACTIONS (6)
  - Vocal cord paralysis [Unknown]
  - Dysphagia [Unknown]
  - Nervous system disorder [Unknown]
  - Nerve injury [Unknown]
  - Gastrointestinal disorder [Unknown]
  - Insomnia [Unknown]
